FAERS Safety Report 5888138-3 (Version None)
Quarter: 2008Q3

REPORT INFORMATION
  Report Type: 
  Country: None (occurrence: None)
  Receive Date: 20080916
  Receipt Date: 20080916
  Transmission Date: 20090109
  Serious: Yes (Life-Threatening, Hospitalization)
  Sender: FDA-Public Use
  Company Number: None

PATIENT
  Age: 10 Year
  Sex: Male
  Weight: 24 kg

DRUGS (1)
  1. DEFERASIROX   500 MG TABS AND 250 MG TABS  NOVARTIS [Suspect]
     Indication: IRON OVERLOAD
     Dosage: 750 MG ALTERNATING WITH 1 G DAILY PO
     Route: 048
     Dates: start: 20030801, end: 20080912

REACTIONS (18)
  - BRAIN OEDEMA [None]
  - DYSKINESIA [None]
  - ESCHERICHIA BACTERAEMIA [None]
  - EYELID OEDEMA [None]
  - EYELID PTOSIS [None]
  - FACIAL PALSY [None]
  - HAEMATOCRIT DECREASED [None]
  - HAEMOGLOBIN DECREASED [None]
  - HEART SOUNDS ABNORMAL [None]
  - HEPATOMEGALY [None]
  - HYPOTENSION [None]
  - LUMBAR PUNCTURE ABNORMAL [None]
  - MENINGITIS [None]
  - NEUROLOGICAL EXAMINATION ABNORMAL [None]
  - SHOCK [None]
  - TACHYCARDIA [None]
  - TACHYPNOEA [None]
  - WHITE BLOOD CELL COUNT DECREASED [None]
